FAERS Safety Report 6983377-2 (Version None)
Quarter: 2010Q3

REPORT INFORMATION
  Report Type: 
  Country: None (occurrence: None)
  Receive Date: 20100914
  Receipt Date: 20100909
  Transmission Date: 20110219
  Serious: Yes (Other)
  Sender: FDA-Public Use
  Company Number: BR-BRISTOL-MYERS SQUIBB COMPANY-15210628

PATIENT
  Age: 30 Year
  Sex: Female

DRUGS (2)
  1. SPRYCEL [Suspect]
     Indication: LEUKAEMIA
     Dosage: INTERRUPTED ON NOV09
     Route: 048
     Dates: start: 20090101, end: 20091101
  2. CLADRIBINE [Suspect]
     Dosage: INTERRUPTED ON NOV09
     Dates: start: 20090101, end: 20091101

REACTIONS (3)
  - ABORTION SPONTANEOUS [None]
  - DRUG EXPOSURE DURING PREGNANCY [None]
  - PREGNANCY [None]
